FAERS Safety Report 7893468-X (Version None)
Quarter: 2011Q4

REPORT INFORMATION
  Report Type: 
  Country: None (occurrence: None)
  Receive Date: 20111104
  Receipt Date: 20111028
  Transmission Date: 20120403
  Serious: Yes (Death)
  Sender: FDA-Public Use
  Company Number: JP-ROCHE-1008409

PATIENT
  Sex: Male

DRUGS (6)
  1. TAMIFLU [Suspect]
     Indication: INFLUENZA
     Route: 064
     Dates: start: 20091024, end: 20091028
  2. AMOLIN (JAPAN) [Concomitant]
     Route: 064
     Dates: start: 20091024, end: 20091028
  3. DUVADILAN [Concomitant]
     Route: 064
     Dates: start: 20091024, end: 20091028
  4. ACETAMINOPHEN [Concomitant]
     Route: 064
     Dates: start: 20091024, end: 20091028
  5. ERYTHROCIN LACTOBIONATE [Concomitant]
     Route: 064
     Dates: start: 20091025, end: 20091031
  6. BISOLVON [Concomitant]
     Route: 064
     Dates: start: 20091024, end: 20091028

REACTIONS (1)
  - BRONCHITIS [None]
